FAERS Safety Report 5739562-0 (Version None)
Quarter: 2008Q2

REPORT INFORMATION
  Report Type: 
  Country: None (occurrence: None)
  Receive Date: 20080515
  Receipt Date: 20080506
  Transmission Date: 20081010
  Serious: Yes (Other)
  Sender: FDA-Public Use
  Company Number: MX-BOEHRINGER INGELHEIM GMBH, GERMANY-2008-DE-02694GD

PATIENT

DRUGS (1)
  1. RANITIDINE [Suspect]

REACTIONS (1)
  - COLITIS MICROSCOPIC [None]
